FAERS Safety Report 7497600-1 (Version None)
Quarter: 2011Q2

REPORT INFORMATION
  Report Type: 
  Country: None (occurrence: None)
  Receive Date: 20110523
  Receipt Date: 20110510
  Transmission Date: 20111010
  Serious: Yes (Other)
  Sender: FDA-Public Use
  Company Number: JP-JNJFOC-20110505721

PATIENT
  Sex: Female
  Weight: 45 kg

DRUGS (5)
  1. REMICADE [Suspect]
     Dosage: TOTAL 12 INFUSIONS
     Route: 042
     Dates: start: 20110510
  2. METHOTREXATE [Concomitant]
     Route: 048
  3. REMICADE [Suspect]
     Indication: RHEUMATOID ARTHRITIS
     Route: 042
     Dates: start: 20091007
  4. ZYRTEC [Concomitant]
     Indication: PROPHYLAXIS
     Route: 048
     Dates: start: 20110509
  5. CALONAL [Concomitant]
     Indication: PROPHYLAXIS
     Route: 048
     Dates: start: 20110509

REACTIONS (4)
  - INFUSION RELATED REACTION [None]
  - OXYGEN SATURATION DECREASED [None]
  - BLOOD PRESSURE DECREASED [None]
  - DYSPNOEA [None]
